FAERS Safety Report 12169977 (Version 3)
Quarter: 2016Q3

REPORT INFORMATION
  Report Type: Report from Study
  Country: US (occurrence: US)
  Receive Date: 20160310
  Receipt Date: 20160715
  Transmission Date: 20161109
  Serious: Yes (Other)
  Sender: FDA-Public Use
  Company Number: US-BIOGEN-2016BI00194473

PATIENT
  Age: 62 Year
  Sex: Male
  Weight: 89.89 kg

DRUGS (6)
  1. TECFIDERA [Suspect]
     Active Substance: DIMETHYL FUMARATE
     Indication: MULTIPLE SCLEROSIS
     Route: 048
     Dates: start: 20150222, end: 20150228
  2. LOSARTAN. [Concomitant]
     Active Substance: LOSARTAN
     Indication: HYPERLIPIDAEMIA
     Dates: start: 20150127
  3. TIZANIDINE. [Concomitant]
     Active Substance: TIZANIDINE
     Dates: start: 20151024
  4. BUPROPION HCL [Concomitant]
     Active Substance: BUPROPION HYDROCHLORIDE
     Indication: DEPRESSION
     Dates: start: 20160126
  5. TECFIDERA [Suspect]
     Active Substance: DIMETHYL FUMARATE
     Route: 048
     Dates: start: 20150301, end: 20160306
  6. HYDROCHLOROTHIAZIDE. [Concomitant]
     Active Substance: HYDROCHLOROTHIAZIDE
     Dates: start: 20151123

REACTIONS (1)
  - Glioblastoma multiforme [Not Recovered/Not Resolved]

NARRATIVE: CASE EVENT DATE: 20160107
